FAERS Safety Report 5880863-3 (Version None)
Quarter: 2008Q3

REPORT INFORMATION
  Report Type: 
  Country: None (occurrence: None)
  Receive Date: 20080912
  Receipt Date: 20080611
  Transmission Date: 20090109
  Serious: Yes (Other)
  Sender: FDA-Public Use
  Company Number: US-ABBOTT-08P-163-0456836-00

PATIENT
  Age: 46 Year
  Sex: Female

DRUGS (3)
  1. HUMIRA [Suspect]
     Indication: CROHN'S DISEASE
     Route: 058
     Dates: start: 20070601, end: 20070801
  2. AZATHIOPRINE [Suspect]
     Indication: CROHN'S DISEASE
  3. PREDNISONE TAB [Suspect]
     Indication: CROHN'S DISEASE
     Dosage: TAPERING DOSE NOT FURTHER CLARIFIED
     Route: 048
     Dates: start: 19970101

REACTIONS (1)
  - ABDOMINAL ABSCESS [None]
